FAERS Safety Report 8453541-4 (Version None)
Quarter: 2012Q2

REPORT INFORMATION
  Report Type: 
  Country: None (occurrence: None)
  Receive Date: 20120620
  Receipt Date: 20120611
  Transmission Date: 20120825
  Serious: Yes (Other)
  Sender: FDA-Public Use
  Company Number: JP-VERTEX PHARMACEUTICALS INC.-AE-2012-005403

PATIENT
  Age: 65 Year
  Sex: Female

DRUGS (16)
  1. REBETOL [Concomitant]
     Route: 048
     Dates: start: 20120201, end: 20120307
  2. TELAVIC (TELAPREVIR) [Suspect]
     Route: 048
     Dates: start: 20120128, end: 20120130
  3. PEG-INTRON [Concomitant]
     Indication: HEPATITIS C
     Route: 058
     Dates: start: 20120118, end: 20120131
  4. URSO 250 [Concomitant]
     Route: 048
     Dates: end: 20120313
  5. TELAVIC (TELAPREVIR) [Suspect]
     Route: 048
     Dates: start: 20120131, end: 20120307
  6. REBETOL [Concomitant]
     Indication: HEPATITIS C
     Route: 048
     Dates: start: 20120118, end: 20120130
  7. REBETOL [Concomitant]
     Route: 048
     Dates: start: 20120131, end: 20120131
  8. REBETOL [Concomitant]
     Route: 048
     Dates: start: 20120404, end: 20120410
  9. REBETOL [Concomitant]
     Route: 048
     Dates: start: 20120411
  10. PEG-INTRON [Concomitant]
     Route: 058
     Dates: start: 20120314, end: 20120320
  11. PEG-INTRON [Concomitant]
     Route: 058
     Dates: start: 20120321
  12. PEG-INTRON [Concomitant]
     Route: 058
     Dates: end: 20120307
  13. EPINASTINE HYDROCHLORIDE [Concomitant]
     Route: 048
     Dates: start: 20120118, end: 20120313
  14. TELAVIC (TELAPREVIR) [Suspect]
     Indication: HEPATITIS C
     Route: 048
     Dates: start: 20120118, end: 20120127
  15. PEG-INTRON [Concomitant]
     Route: 058
     Dates: start: 20120201
  16. PEG-INTRON [Concomitant]
     Route: 058
     Dates: start: 20120215

REACTIONS (9)
  - BLOOD URIC ACID INCREASED [None]
  - HAEMOGLOBIN DECREASED [None]
  - BLOOD CREATININE INCREASED [None]
  - VOMITING [None]
  - RENAL DISORDER [None]
  - RASH [None]
  - ERYTHEMA [None]
  - HEPATIC FUNCTION ABNORMAL [None]
  - DECREASED APPETITE [None]
